FAERS Safety Report 10784454 (Version 1)
Quarter: 2015Q1

REPORT INFORMATION
  Report Type: Spontaneous
  Country: US (occurrence: None)
  Receive Date: 20150209
  Receipt Date: 20150209
  Transmission Date: 20150721
  Serious: Yes (Disabling)
  Sender: FDA-Public Use
  Company Number: None

PATIENT
  Age: 29 Year
  Sex: Male
  Weight: 92.99 kg

DRUGS (1)
  1. CIPROFLAXIN [Suspect]
     Active Substance: CIPROFLOXACIN
     Indication: PROSTATITIS
     Dosage: 2 PILLS, TWICE DAILY, TAKEN BY MOUTH
     Route: 048

REACTIONS (3)
  - Sleep disorder [None]
  - Muscle twitching [None]
  - Dyskinesia [None]

NARRATIVE: CASE EVENT DATE: 20140409
